FAERS Safety Report 5303012-9 (Version None)
Quarter: 2007Q2

REPORT INFORMATION
  Report Type: 
  Country: None (occurrence: None)
  Receive Date: 20070413
  Receipt Date: 20070404
  Transmission Date: 20071010
  Serious: Yes (Other)
  Sender: FDA-Public Use
  Company Number: 2007BI001286

PATIENT
  Age: 39 Year
  Sex: Male

DRUGS (1)
  1. NATALIZUMAB [Suspect]
     Indication: MULTIPLE SCLEROSIS
     Dosage: 300 MG, QM; IV
     Route: 042
     Dates: start: 20061116

REACTIONS (4)
  - BRONCHITIS [None]
  - HYPERSENSITIVITY [None]
  - REFUSAL OF TREATMENT BY PATIENT [None]
  - VIRAL UPPER RESPIRATORY TRACT INFECTION [None]
